FAERS Safety Report 13400955 (Version 1)
Quarter: 2017Q2

REPORT INFORMATION
  Report Type: Spontaneous
  Country: US (occurrence: US)
  Receive Date: 20170404
  Receipt Date: 20170404
  Transmission Date: 20170830
  Serious: No
  Sender: FDA-Public Use
  Company Number: US-GLAXOSMITHKLINE-US2017GSK046466

PATIENT
  Sex: Male

DRUGS (1)
  1. SUMATRIPTAN (SUMATRIPTAN SUCCINATE) TABLET [Suspect]
     Active Substance: SUMATRIPTAN
     Indication: MIGRAINE WITH AURA
     Dosage: UNK

REACTIONS (1)
  - Drug ineffective [Unknown]
